FAERS Safety Report 8930395 (Version 3)
Quarter: 2012Q4

REPORT INFORMATION
  Report Type: 
  Country: JP (occurrence: JP)
  Receive Date: 20121128
  Receipt Date: 20121228
  Transmission Date: 20130627
  Serious: Yes (Death)
  Sender: FDA-Public Use
  Company Number: JP-GLAXOSMITHKLINE-B0847464A

PATIENT
  Age: 73 Year
  Sex: Female
  Weight: 38 kg

DRUGS (4)
  1. ARIXTRA [Suspect]
     Indication: DEEP VEIN THROMBOSIS
     Dosage: 5MG Per day
     Route: 058
     Dates: start: 20121113, end: 20121117
  2. WARFARIN [Suspect]
     Indication: DEEP VEIN THROMBOSIS
     Dosage: 3MG Per day
     Route: 048
     Dates: start: 20121114, end: 20121117
  3. PLAVIX [Suspect]
     Indication: ANGINA UNSTABLE
     Dosage: 75MG Per day
     Route: 048
     Dates: start: 20121107, end: 20121118
  4. BAYASPIRIN [Concomitant]
     Indication: ANGINA UNSTABLE
     Dosage: 100MG Per day
     Route: 048
     Dates: end: 20121118

REACTIONS (3)
  - Subarachnoid haemorrhage [Fatal]
  - Cerebral haemorrhage [Fatal]
  - Intracranial pressure increased [Unknown]
